FAERS Safety Report 16938728 (Version 1)
Quarter: 2019Q4

REPORT INFORMATION
  Report Type: Report from Study
  Country: ZA (occurrence: ZA)
  Receive Date: 20191020
  Receipt Date: 20191020
  Transmission Date: 20200122
  Serious: Yes (Hospitalization, Other)
  Sender: FDA-Public Use
  Company Number: PHHY2018ZA028613

PATIENT
  Age: 33 Year
  Sex: Female

DRUGS (2)
  1. SOLU-MEDROL [Concomitant]
     Active Substance: METHYLPREDNISOLONE SODIUM SUCCINATE
     Indication: PRODUCT USED FOR UNKNOWN INDICATION
     Route: 065
  2. TUVIGIN [Suspect]
     Active Substance: FINGOLIMOD HYDROCHLORIDE
     Indication: RELAPSING-REMITTING MULTIPLE SCLEROSIS
     Dosage: 0.5 MG, QD
     Route: 048
     Dates: start: 20180604

REACTIONS (9)
  - Nasopharyngitis [Unknown]
  - Nasal congestion [Unknown]
  - Multiple sclerosis relapse [Unknown]
  - Ataxia [Unknown]
  - Oropharyngeal pain [Unknown]
  - Hallucination [Unknown]
  - Paraesthesia [Unknown]
  - Sensory loss [Unknown]
  - Optic neuritis [Unknown]

NARRATIVE: CASE EVENT DATE: 20180617
